FAERS Safety Report 8168834-8 (Version None)
Quarter: 2012Q1

REPORT INFORMATION
  Report Type: 
  Country: None (occurrence: None)
  Receive Date: 20120227
  Receipt Date: 20120217
  Transmission Date: 20120608
  Serious: Yes (Hospitalization)
  Sender: FDA-Public Use
  Company Number: US-MILLENNIUM PHARMACEUTICALS, INC.-2012-00286

PATIENT
  Sex: Female
  Weight: 67.574 kg

DRUGS (5)
  1. LENALIDOMIDE [Suspect]
     Indication: MANTLE CELL LYMPHOMA
     Dosage: 5 MG, CYCLIC
     Route: 048
     Dates: start: 20110926, end: 20111117
  2. SEROQUEL [Concomitant]
     Indication: PRODUCT USED FOR UNKNOWN INDICATION
  3. VELCADE [Suspect]
     Indication: MANTLE CELL LYMPHOMA
     Dosage: 1.27 MG, CYCLIC
     Route: 042
     Dates: start: 20110926, end: 20111227
  4. RITUXIMAB [Suspect]
     Indication: MANTLE CELL LYMPHOMA
     Dosage: 683 MG, CYCLIC
     Route: 042
     Dates: start: 20110926, end: 20111219
  5. ARICEPT [Concomitant]
     Indication: PRODUCT USED FOR UNKNOWN INDICATION

REACTIONS (18)
  - PARANOIA [None]
  - INTUSSUSCEPTION [None]
  - BLOOD POTASSIUM DECREASED [None]
  - DRUG INTOLERANCE [None]
  - BLOOD GLUCOSE INCREASED [None]
  - BLOOD CALCIUM DECREASED [None]
  - CONDITION AGGRAVATED [None]
  - ENTEROCOLITIS INFECTIOUS [None]
  - ANXIETY [None]
  - CONFUSIONAL STATE [None]
  - MAJOR DEPRESSION [None]
  - WHITE BLOOD CELL COUNT DECREASED [None]
  - BLOOD SODIUM DECREASED [None]
  - PYELONEPHRITIS [None]
  - POST HERPETIC NEURALGIA [None]
  - LYMPHADENOPATHY [None]
  - THROMBOCYTOPENIA [None]
  - BACTERIAL TEST POSITIVE [None]
